FAERS Safety Report 5290999-6 (Version None)
Quarter: 2007Q2

REPORT INFORMATION
  Report Type: 
  Country: None (occurrence: None)
  Receive Date: 20070409
  Receipt Date: 20070330
  Transmission Date: 20071010
  Serious: Yes (Life-Threatening)
  Sender: FDA-Public Use
  Company Number: JP-ROCHE-486305

PATIENT
  Sex: Male
  Weight: 3.3 kg

DRUGS (1)
  1. TAMIFLU [Suspect]
     Indication: INFLUENZA
     Dosage: THE PATIENT RECEIVED TWO CAPSULES IN TOTAL.
     Dates: start: 20070303, end: 20070304

REACTIONS (1)
  - DISSEMINATED INTRAVASCULAR COAGULATION [None]
